FAERS Safety Report 15703564 (Version 1)
Quarter: 2018Q4

REPORT INFORMATION
  Report Type: Spontaneous
  Country: RU (occurrence: RU)
  Receive Date: 20181210
  Receipt Date: 20181210
  Transmission Date: 20190205
  Serious: Yes (Other)
  Sender: FDA-Public Use
  Company Number: PHHY2018RU179373

PATIENT
  Age: 28 Year
  Sex: Male
  Weight: 60 kg

DRUGS (2)
  1. EDICIN [Suspect]
     Active Substance: VANCOMYCIN HYDROCHLORIDE
     Indication: URINARY TRACT INFECTION ENTEROCOCCAL
     Dosage: 2 G, QD (SINGLE DOSE 1 G)
     Route: 042
  2. EDICIN [Suspect]
     Active Substance: VANCOMYCIN HYDROCHLORIDE
     Dosage: 150 MG, QD
     Route: 042
     Dates: start: 20171121, end: 20171121

REACTIONS (3)
  - Hypertonia [Recovering/Resolving]
  - Face oedema [Recovering/Resolving]
  - Localised oedema [Recovering/Resolving]

NARRATIVE: CASE EVENT DATE: 20171121
